FAERS Safety Report 18924729 (Version 1)
Quarter: 2021Q1

REPORT INFORMATION
  Report Type: Spontaneous
  Country: US (occurrence: US)
  Receive Date: 20210222
  Receipt Date: 20210222
  Transmission Date: 20210420
  Serious: No
  Sender: FDA-Public Use
  Company Number: US-PERRIGO-20US008578

PATIENT
  Sex: Male
  Weight: 72.56 kg

DRUGS (3)
  1. TESTOSTERONE CYPIONATE. [Suspect]
     Active Substance: TESTOSTERONE CYPIONATE
     Indication: BLOOD TESTOSTERONE DECREASED
     Dosage: 40 MG, TWICE WEEKLY
     Route: 058
     Dates: start: 2019, end: 2019
  2. RAMIPRIL. [Concomitant]
     Active Substance: RAMIPRIL
     Indication: BLOOD PRESSURE ABNORMAL
     Dosage: UNK
     Route: 065
     Dates: start: 2018
  3. TESTOSTERONE CYPIONATE. [Suspect]
     Active Substance: TESTOSTERONE CYPIONATE
     Dosage: 40 MG, TWICE WEEKLY
     Route: 058
     Dates: start: 202003, end: 202003

REACTIONS (2)
  - Incorrect route of product administration [Recovered/Resolved]
  - Injection site rash [Recovered/Resolved]

NARRATIVE: CASE EVENT DATE: 2019
